FAERS Safety Report 6613138-5 (Version None)
Quarter: 2010Q1

REPORT INFORMATION
  Report Type: 
  Country: None (occurrence: None)
  Receive Date: 20100225
  Receipt Date: 20100210
  Transmission Date: 20100710
  Serious: Yes (Hospitalization)
  Sender: FDA-Public Use
  Company Number: KV200800423

PATIENT
  Age: 77 Year
  Sex: Male
  Weight: 127.9 kg

DRUGS (18)
  1. MORPHINE SULFATE [Suspect]
     Indication: GOUT
     Dosage: 15 MG, SEE TEXT , ORAL
     Route: 048
     Dates: start: 20080805, end: 20080805
  2. COLCHICINE (COLCHICINE) [Suspect]
     Indication: GOUT
     Dosage: 0.6 MG, SEE TEXT, ORAL
     Route: 048
     Dates: start: 20080804, end: 20080805
  3. TRICOR [Concomitant]
  4. ROPINIROLE HYDROCHLORIDE [Concomitant]
  5. ALLOPURINOL [Concomitant]
  6. SPIRONOLACTONE [Concomitant]
  7. DIGOXIN [Concomitant]
  8. GABAPENTIN [Concomitant]
  9. POTASSIUM CHLORIDE [Concomitant]
  10. LOVASTATIN [Concomitant]
  11. FUROSEMIDE [Concomitant]
  12. METOPROLOL TARTRATE [Concomitant]
  13. ASPIRIN [Concomitant]
  14. METOLAZONE [Concomitant]
  15. NOVOLIN [Concomitant]
  16. PREDNISONE [Concomitant]
  17. COZAAR [Concomitant]
  18. MIRAPEX [Concomitant]

REACTIONS (33)
  - ABDOMINAL PAIN [None]
  - ARTHRALGIA [None]
  - ASTHENIA [None]
  - ATAXIA [None]
  - BLOOD GLUCOSE DECREASED [None]
  - CONFUSIONAL STATE [None]
  - COORDINATION ABNORMAL [None]
  - CRYING [None]
  - DECREASED APPETITE [None]
  - DIABETIC ULCER [None]
  - DIARRHOEA [None]
  - DISORIENTATION [None]
  - DYSPNOEA [None]
  - GRIMACING [None]
  - HYPERHIDROSIS [None]
  - INTESTINAL GANGRENE [None]
  - JOINT SWELLING [None]
  - LETHARGY [None]
  - MENTAL IMPAIRMENT [None]
  - MIOSIS [None]
  - MOANING [None]
  - OEDEMA PERIPHERAL [None]
  - OTITIS MEDIA [None]
  - PAIN IN EXTREMITY [None]
  - PRODUCT QUALITY ISSUE [None]
  - PYREXIA [None]
  - RESTLESSNESS [None]
  - SMALL INTESTINAL OBSTRUCTION [None]
  - SMALL INTESTINE GANGRENE [None]
  - SOMNOLENCE [None]
  - UMBILICAL HERNIA [None]
  - UMBILICAL HERNIA, OBSTRUCTIVE [None]
  - URINARY INCONTINENCE [None]
